FAERS Safety Report 5165615-4 (Version None)
Quarter: 2006Q4

REPORT INFORMATION
  Report Type: 
  Country: None (occurrence: None)
  Receive Date: 20061206
  Receipt Date: 20061122
  Transmission Date: 20070319
  Serious: Yes (Other)
  Sender: FDA-Public Use
  Company Number: SE-BRISTOL-MYERS SQUIBB COMPANY-13596259

PATIENT
  Sex: Female

DRUGS (1)
  1. APROVEL [Suspect]
     Dosage: START APR/MAR 2005; MAR/APR 2006 END OF THERAPY.
     Route: 048
     Dates: start: 20050101, end: 20060101

REACTIONS (8)
  - BLOOD PRESSURE DECREASED [None]
  - CHILLS [None]
  - COLD SWEAT [None]
  - COUGH [None]
  - FEELING COLD [None]
  - LUNG NEOPLASM MALIGNANT [None]
  - NAUSEA [None]
  - PULSE PRESSURE DECREASED [None]
